FAERS Safety Report 9901742 (Version 1)
Quarter: 2014Q1

REPORT INFORMATION
  Report Type: Spontaneous
  Country: CH (occurrence: CH)
  Receive Date: 20140217
  Receipt Date: 20140217
  Transmission Date: 20141002
  Serious: Yes (Other)
  Sender: FDA-Public Use
  Company Number: CH-ELI_LILLY_AND_COMPANY-CH201402001938

PATIENT
  Age: 35 Year
  Sex: Male
  Weight: 85 kg

DRUGS (6)
  1. CYMBALTA [Suspect]
     Indication: DEPRESSION
     Dosage: 90 MG, QD
     Route: 048
     Dates: end: 201304
  2. CYMBALTA [Suspect]
     Dosage: 120 MG, QD
     Route: 048
     Dates: start: 20130409, end: 20131101
  3. CYMBALTA [Suspect]
     Dosage: 60 MG, QD
     Route: 048
     Dates: start: 20131102
  4. QUILONORM /00033702/ [Suspect]
     Indication: BIPOLAR DISORDER
     Dosage: 900 MG, UNK
     Route: 048
     Dates: start: 20120312, end: 20130415
  5. QUILONORM /00033702/ [Suspect]
     Dosage: 1125 MG, UNK
     Route: 048
     Dates: start: 20130416, end: 20131105
  6. QUILONORM /00033702/ [Suspect]
     Dosage: 1350 MG, UNK
     Route: 048
     Dates: start: 20131106

REACTIONS (7)
  - Abdominal pain upper [Recovering/Resolving]
  - Blood thyroid stimulating hormone increased [Not Recovered/Not Resolved]
  - Aspartate aminotransferase increased [Recovered/Resolved]
  - Alanine aminotransferase increased [Recovering/Resolving]
  - Gamma-glutamyltransferase increased [Not Recovered/Not Resolved]
  - Apathy [Recovering/Resolving]
  - Nausea [Recovering/Resolving]
